FAERS Safety Report 4927758-7 (Version None)
Quarter: 2006Q1

REPORT INFORMATION
  Report Type: 
  Country: None (occurrence: None)
  Receive Date: 20060228
  Receipt Date: 20050321
  Transmission Date: 20060701
  Serious: No
  Sender: FDA-Public Use
  Company Number: US-GLAXOSMITHKLINE-A0550902A

PATIENT
  Age: 42 Year
  Sex: Male

DRUGS (4)
  1. ZIAGEN [Suspect]
     Indication: HIV INFECTION
     Dosage: 300MG TWICE PER DAY
     Dates: start: 20041110
  2. BACTRIM [Concomitant]
  3. VIDEX [Concomitant]
     Dosage: 400MG PER DAY
  4. UNSPECIFIED MEDICATION [Concomitant]
     Dosage: 200MG PER DAY

REACTIONS (1)
  - BACK PAIN [None]
